FAERS Safety Report 14802788 (Version 1)
Quarter: 2018Q2

REPORT INFORMATION
  Report Type: Spontaneous
  Country: FR (occurrence: FR)
  Receive Date: 20180424
  Receipt Date: 20180424
  Transmission Date: 20180711
  Serious: Yes (Hospitalization)
  Sender: FDA-Public Use
  Company Number: FR-PFIZER INC-2018163886

PATIENT
  Age: 5 Year
  Sex: Male
  Weight: 17 kg

DRUGS (2)
  1. DOLIPRANE [Suspect]
     Active Substance: ACETAMINOPHEN
     Indication: INFLUENZA
     Dosage: 300 MG (1 DF), UNK
     Route: 048
     Dates: start: 20180116, end: 20180118
  2. ADVILMED ENFANTS ET NOURRISSONS [Suspect]
     Active Substance: IBUPROFEN
     Indication: INFLUENZA
     Dosage: UNK
     Route: 048
     Dates: start: 20180118, end: 20180118

REACTIONS (2)
  - Haematemesis [Recovered/Resolved]
  - Reye^s syndrome [Recovered/Resolved]

NARRATIVE: CASE EVENT DATE: 20180118
